FAERS Safety Report 4832797-0 (Version None)
Quarter: 2005Q4

REPORT INFORMATION
  Report Type: 
  Country: None (occurrence: None)
  Receive Date: 20051117
  Receipt Date: 20051117
  Transmission Date: 20060501
  Serious: No
  Sender: FDA-Public Use
  Company Number: None

PATIENT
  Age: 25 Year
  Sex: Female
  Weight: 77.1115 kg

DRUGS (2)
  1. PAROXETINE HCL [Suspect]
     Indication: ANXIETY
     Dosage: 20MG  1 DAILY PO
     Route: 048
     Dates: start: 20030518, end: 20051116
  2. PAROXETINE HCL [Suspect]
     Indication: POSTPARTUM DEPRESSION
     Dosage: 20MG  1 DAILY PO
     Route: 048
     Dates: start: 20030518, end: 20051116

REACTIONS (5)
  - BALANCE DISORDER [None]
  - DIZZINESS [None]
  - MALAISE [None]
  - MEDICATION ERROR [None]
  - PARAESTHESIA [None]
